FAERS Safety Report 16035793 (Version 1)
Quarter: 2019Q1

REPORT INFORMATION
  Report Type: Spontaneous
  Country: NO (occurrence: NO)
  Receive Date: 20190305
  Receipt Date: 20190305
  Transmission Date: 20190418
  Serious: Yes (Other)
  Sender: FDA-Public Use
  Company Number: NO-ASTRAZENECA-2019SE32461

PATIENT
  Age: 16 Year
  Sex: Female
  Weight: 55 kg

DRUGS (2)
  1. SEROQUEL [Suspect]
     Active Substance: QUETIAPINE FUMARATE
     Indication: AUTISM SPECTRUM DISORDER
     Dosage: THE DESCRIBED DOSAGE IS 2 MG TWICE DAILY, BUT THE PARENT DOES NOT KNOW HOW OFTEN THE MEDICATION I...
     Route: 048
     Dates: start: 20170201
  2. SEROQUEL [Suspect]
     Active Substance: QUETIAPINE FUMARATE
     Indication: OBSESSIVE-COMPULSIVE DISORDER
     Dosage: THE DESCRIBED DOSAGE IS 2 MG TWICE DAILY, BUT THE PARENT DOES NOT KNOW HOW OFTEN THE MEDICATION I...
     Route: 048
     Dates: start: 20170201

REACTIONS (9)
  - Anger [Not Recovered/Not Resolved]
  - Abnormal behaviour [Not Recovered/Not Resolved]
  - Language disorder [Not Recovered/Not Resolved]
  - Constipation [Not Recovered/Not Resolved]
  - Soliloquy [Not Recovered/Not Resolved]
  - Headache [Not Recovered/Not Resolved]
  - Intentional self-injury [Not Recovered/Not Resolved]
  - Neurodevelopmental disorder [Not Recovered/Not Resolved]
  - Abdominal pain [Not Recovered/Not Resolved]

NARRATIVE: CASE EVENT DATE: 20170210
